FAERS Safety Report 8930168 (Version 2)
Quarter: 2012Q4

REPORT INFORMATION
  Report Type: 
  Country: US (occurrence: US)
  Receive Date: 20121121
  Receipt Date: 20121212
  Transmission Date: 20130627
  Serious: Yes (Death)
  Sender: FDA-Public Use
  Company Number: US-ASTELLAS-1107199

PATIENT
  Sex: Male

DRUGS (4)
  1. TARCEVA [Suspect]
     Indication: MALIGNANT RESPIRATORY TRACT NEOPLASM
     Route: 048
     Dates: start: 20080124, end: 20080329
  2. HYDROCORTISONE CREAM [Concomitant]
     Dosage: 2.5%
     Route: 065
  3. CLINDAMYCIN [Concomitant]
     Dosage: 1 %
     Route: 065
  4. MINOCYCLINE [Concomitant]
     Route: 065

REACTIONS (2)
  - Lung neoplasm malignant [Fatal]
  - Rash [Unknown]
